FAERS Safety Report 24056437 (Version 1)
Quarter: 2024Q3

REPORT INFORMATION
  Report Type: Spontaneous
  Country: CN (occurrence: CN)
  Receive Date: 20240705
  Receipt Date: 20240705
  Transmission Date: 20241016
  Serious: Yes (Other)
  Sender: MERCK
  Company Number: CN-009507513-2407CHN000037

PATIENT
  Age: 66 Year
  Sex: Female

DRUGS (2)
  1. KEYTRUDA [Suspect]
     Active Substance: PEMBROLIZUMAB
     Indication: Squamous cell carcinoma of the tongue
     Dosage: 200 MILLIGRAM, Q3W
     Dates: start: 20230305, end: 20230305
  2. KEYTRUDA [Suspect]
     Active Substance: PEMBROLIZUMAB
     Indication: Tongue cancer recurrent
     Dosage: 200 MILLIGRAM, Q3W
     Dates: start: 20230330, end: 20230330

REACTIONS (12)
  - Pneumonitis [Unknown]
  - Pulmonary fibrosis [Unknown]
  - Pulmonary mass [Unknown]
  - Vascular calcification [Unknown]
  - Lymph node calcification [Unknown]
  - Splenic calcification [Unknown]
  - Hepatic calcification [Unknown]
  - Renal cyst [Unknown]
  - Renal mass [Unknown]
  - Thyroid disorder [Unknown]
  - Therapy partial responder [Unknown]
  - Inappropriate schedule of product administration [Unknown]

NARRATIVE: CASE EVENT DATE: 20230306
